FAERS Safety Report 17283449 (Version 1)
Quarter: 2020Q1

REPORT INFORMATION
  Report Type: Spontaneous
  Country: US (occurrence: US)
  Receive Date: 20200116
  Receipt Date: 20200116
  Transmission Date: 20200409
  Serious: Yes (Other)
  Sender: FDA-Public Use
  Company Number: None

PATIENT
  Age: 75 Year
  Sex: Female
  Weight: 58.5 kg

DRUGS (11)
  1. LOW DOSE ASPIRIN [Concomitant]
     Active Substance: ASPIRIN
  2. BISOPROLOL FUMARATE/HYDROCHLOROTHIAZIDE [Concomitant]
     Active Substance: BISOPROLOL FUMARATE\HYDROCHLOROTHIAZIDE
  3. GLUCOSAMINE CHONDROITIN [Concomitant]
     Active Substance: CHONDROITIN SULFATE (BOVINE)\GLUCOSAMINE HYDROCHLORIDE
  4. MONTELUKAST SODIUM. [Concomitant]
     Active Substance: MONTELUKAST SODIUM
  5. NEPAFENAC COMPOUNDED DROPS [Suspect]
     Active Substance: NEPAFENAC
     Indication: CATARACT OPERATION
     Dosage: ?          QUANTITY:1 DROP(S);OTHER FREQUENCY:4X/3X/2X/1X/DAY;?
     Route: 047
     Dates: start: 20191118, end: 20191218
  6. TRIAMCINOLONE ACETONIDE. [Concomitant]
     Active Substance: TRIAMCINOLONE ACETONIDE
  7. MULTIVITAMIN [Concomitant]
     Active Substance: VITAMINS
  8. FINACEA [Concomitant]
     Active Substance: AZELAIC ACID
  9. ROSUVASTATIN CALCIUM. [Concomitant]
     Active Substance: ROSUVASTATIN CALCIUM
  10. RESTASIS [Concomitant]
     Active Substance: CYCLOSPORINE
  11. CRANBERRY\ASCORBIC ACID [Concomitant]

REACTIONS (2)
  - Visual impairment [None]
  - Abnormal sensation in eye [None]

NARRATIVE: CASE EVENT DATE: 20191121
